FAERS Safety Report 4449491-0 (Version None)
Quarter: 2004Q3

REPORT INFORMATION
  Report Type: 
  Country: None (occurrence: None)
  Receive Date: 20040913
  Receipt Date: 20040906
  Transmission Date: 20050211
  Serious: Yes (Life-Threatening)
  Sender: FDA-Public Use
  Company Number: 003#3#2004-00561

PATIENT
  Age: 46 Year
  Sex: Male

DRUGS (3)
  1. ISOSORBIDE DINITRATE [Suspect]
     Indication: CHEST PAIN
     Dosage: 1.2ML/HOUR INTRAVENOUS DRIP
     Route: 041
     Dates: start: 20040630, end: 20040630
  2. NITROLINGUAL (GLYCERYL TRINITRATE) [Suspect]
     Indication: CHEST PAIN
     Dosage: 2 PUFFS SUBLINGUAL
     Route: 060
     Dates: start: 20040630, end: 20040630
  3. ASPIRIN [Concomitant]

REACTIONS (2)
  - OBSTRUCTIVE AIRWAYS DISORDER [None]
  - SWOLLEN TONGUE [None]
